FAERS Safety Report 7051676-4 (Version None)
Quarter: 2010Q4

REPORT INFORMATION
  Report Type: 
  Country: None (occurrence: None)
  Receive Date: 20101012
  Receipt Date: 20100929
  Transmission Date: 20110411
  Serious: Yes (Death, Other)
  Sender: FDA-Public Use
  Company Number: UTC-001032

PATIENT
  Age: 66 Year
  Sex: Female
  Weight: 86.2 kg

DRUGS (12)
  1. REMODULIN [Suspect]
     Indication: PULMONARY ARTERIAL HYPERTENSION
     Dosage: 115.2 UG/KG (0.08 UG/KG,1 IN 1 MIN),INTRAVENOUS
     Route: 042
     Dates: start: 20070101
  2. REVATIO [Suspect]
     Indication: PULMONARY ARTERIAL HYPERTENSION
     Dosage: 120 MG (40 MG,3 IN 1 D)
     Dates: start: 20050101
  3. AMBRISENTAN (AMBRISENTAN) [Concomitant]
  4. POTASSIUM CHLORIDE [Concomitant]
  5. LASIX [Concomitant]
  6. PREMARIN [Concomitant]
  7. NEXIUM [Concomitant]
  8. MAGNESIUM (MAGNESIUM) [Concomitant]
  9. CLARITIN [Concomitant]
  10. INSULIN (INSULIN) [Concomitant]
  11. OXYGEN (OXYGEN) [Concomitant]
  12. LATHYRUS [Concomitant]

REACTIONS (6)
  - ANXIETY [None]
  - DISEASE PROGRESSION [None]
  - FATIGUE [None]
  - PULMONARY ARTERIAL HYPERTENSION [None]
  - SLUGGISHNESS [None]
  - TACHYCARDIA [None]
